FAERS Safety Report 9720889 (Version 2)
Quarter: 2014Q1

REPORT INFORMATION
  Report Type: Spontaneous
  Country: US (occurrence: US)
  Receive Date: 20131129
  Receipt Date: 20140131
  Transmission Date: 20141002
  Serious: No
  Sender: FDA-Public Use
  Company Number: US-JNJFOC-20131108822

PATIENT
  Sex: Female
  Weight: 61.24 kg

DRUGS (13)
  1. INVEGA [Suspect]
     Indication: BIPOLAR I DISORDER
     Route: 048
     Dates: start: 201307
  2. INVEGA [Suspect]
     Indication: BIPOLAR I DISORDER
     Route: 048
     Dates: start: 2013, end: 201307
  3. INVEGA [Suspect]
     Indication: BIPOLAR I DISORDER
     Route: 048
     Dates: start: 2013, end: 2013
  4. RISPERIDONE [Suspect]
     Indication: BIPOLAR I DISORDER
     Route: 048
     Dates: start: 201307, end: 201307
  5. CITALOPRAM [Suspect]
     Indication: BIPOLAR I DISORDER
     Route: 048
     Dates: start: 201307, end: 201307
  6. XANAX [Concomitant]
     Indication: ANXIETY
     Route: 048
  7. LISINOPRIL [Concomitant]
     Indication: BLOOD PRESSURE
     Route: 048
  8. NORCO [Concomitant]
     Indication: NECK PAIN
     Dosage: 10-325 MG
     Route: 048
  9. NORCO [Concomitant]
     Indication: BACK PAIN
     Dosage: 10-325 MG
     Route: 048
  10. SOMA [Concomitant]
     Indication: NECK PAIN
     Route: 048
  11. SOMA [Concomitant]
     Indication: BACK PAIN
     Route: 048
  12. TEMAZEPAM [Concomitant]
     Indication: INSOMNIA
     Dosage: ONCE A DAY AT NIGHT
     Route: 048
  13. GABAPENTIN [Concomitant]
     Indication: NEURALGIA
     Dosage: 5-6 TIMES A DAY
     Route: 048

REACTIONS (6)
  - Lethargy [Recovered/Resolved]
  - Fatigue [Recovered/Resolved]
  - Feeling abnormal [Recovered/Resolved]
  - Fear [Not Recovered/Not Resolved]
  - Depression [Recovered/Resolved]
  - Drug ineffective [Not Recovered/Not Resolved]
